FAERS Safety Report 16678689 (Version 1)
Quarter: 2019Q3

REPORT INFORMATION
  Report Type: Spontaneous
  Country: US (occurrence: US)
  Receive Date: 20190806
  Receipt Date: 20190806
  Transmission Date: 20191004
  Serious: Yes (Other)
  Sender: FDA-Public Use
  Company Number: None

PATIENT
  Age: 46 Year
  Sex: Female
  Weight: 76.5 kg

DRUGS (1)
  1. VENLAFAXINE HCL ER 75 MG AUROBINDO [Suspect]
     Active Substance: VENLAFAXINE HYDROCHLORIDE
     Indication: DEPRESSION
     Dosage: ?          QUANTITY:1 CAPSULE(S);?
     Route: 048
     Dates: start: 20190720

REACTIONS (7)
  - Depressed mood [None]
  - Anxiety [None]
  - Dizziness [None]
  - Tinnitus [None]
  - Withdrawal syndrome [None]
  - Product substitution issue [None]
  - Crying [None]

NARRATIVE: CASE EVENT DATE: 20190723
